FAERS Safety Report 7076368-7 (Version None)
Quarter: 2010Q4

REPORT INFORMATION
  Report Type: 
  Country: None (occurrence: None)
  Receive Date: 20101101
  Receipt Date: 20101028
  Transmission Date: 20110411
  Serious: Yes (Death, Other)
  Sender: FDA-Public Use
  Company Number: US-B.I. PHARMACEUTICALS,INC./RIDGEFIELD-2010-BP-12150BP

PATIENT
  Sex: Male

DRUGS (4)
  1. SPIRIVA [Suspect]
     Indication: CHRONIC OBSTRUCTIVE PULMONARY DISEASE
     Dates: start: 20101024, end: 20101027
  2. CLARITHROMYCIN [Concomitant]
     Indication: URINARY TRACT INFECTION
     Dosage: 1000 MG
     Route: 048
     Dates: end: 20101027
  3. SPIRONOLACTONE [Concomitant]
     Indication: OEDEMA
     Dosage: 100 MG
     Route: 048
     Dates: end: 20101027
  4. HYDROCODONE BITARTRATE + ACETAMINOPHEN [Concomitant]
     Indication: PAIN IN EXTREMITY
     Dosage: 325 MG
     Route: 048
     Dates: end: 20101027

REACTIONS (2)
  - DEATH [None]
  - MYOCARDIAL INFARCTION [None]
